FAERS Safety Report 6810093-X (Version None)
Quarter: 2010Q2

REPORT INFORMATION
  Report Type: 
  Country: None (occurrence: None)
  Receive Date: 20100630
  Receipt Date: 20100625
  Transmission Date: 20101027
  Serious: Yes (Life-Threatening, Disabling)
  Sender: FDA-Public Use
  Company Number: GB-ROCHE-711654

PATIENT
  Age: 22 Year
  Sex: Male
  Weight: 64 kg

DRUGS (1)
  1. ISOTRETINOIN [Suspect]
     Indication: ACNE
     Route: 065
     Dates: start: 20090601, end: 20100201

REACTIONS (2)
  - ACUTE PSYCHOSIS [None]
  - INTENTIONAL SELF-INJURY [None]
